FAERS Safety Report 9223015 (Version 3)
Quarter: 2013Q2

REPORT INFORMATION
  Report Type: Spontaneous
  Country: US (occurrence: US)
  Receive Date: 20130410
  Receipt Date: 20130429
  Transmission Date: 20140414
  Serious: Yes (Other)
  Sender: FDA-Public Use
  Company Number: US-ROCHE-1211885

PATIENT
  Age: 71 Year
  Sex: Male
  Weight: 75.36 kg

DRUGS (4)
  1. ERIVEDGE [Suspect]
     Indication: BASAL CELL CARCINOMA
     Route: 048
     Dates: start: 20130301, end: 20130314
  2. FLOMAX [Concomitant]
     Route: 048
  3. CRESTOR [Concomitant]
     Indication: HYPERLIPIDAEMIA
     Route: 048
  4. ALLEGRA [Concomitant]
     Indication: HYPERSENSITIVITY
     Route: 048

REACTIONS (3)
  - Gastrointestinal disorder [Unknown]
  - Liver function test abnormal [Recovered/Resolved]
  - Lipase increased [Recovered/Resolved]
